FAERS Safety Report 6696552-1 (Version None)
Quarter: 2010Q2

REPORT INFORMATION
  Report Type: 
  Country: None (occurrence: None)
  Receive Date: 20100426
  Receipt Date: 20100114
  Transmission Date: 20101027
  Serious: Yes (Death, Other)
  Sender: FDA-Public Use
  Company Number: ZA-SANOFI-AVENTIS-200915845EU

PATIENT
  Age: 60 Year
  Sex: Male

DRUGS (6)
  1. ENOXAPARIN SODIUM [Suspect]
     Indication: THROMBOSIS PROPHYLAXIS
     Route: 058
     Dates: start: 20090918, end: 20090927
  2. HEPARIN [Suspect]
     Dosage: DOSE UNIT: 5000 IU
     Route: 041
     Dates: start: 20090901
  3. SOLU-MEDROL [Concomitant]
     Indication: IMMUNOSUPPRESSION
     Dates: start: 20090918, end: 20091005
  4. PROGRAF [Concomitant]
     Dates: start: 20090918, end: 20091005
  5. BACTRIM DS [Concomitant]
     Indication: PROPHYLAXIS
     Dates: start: 20090918, end: 20091005
  6. VALCYTE [Concomitant]
     Indication: PROPHYLAXIS
     Dates: start: 20090918, end: 20091005

REACTIONS (2)
  - HEPARIN-INDUCED THROMBOCYTOPENIA [None]
  - PORTAL VEIN THROMBOSIS [None]
